FAERS Safety Report 8511357 (Version 3)
Quarter: 2012Q4

REPORT INFORMATION
  Report Type: 
  Country: US (occurrence: US)
  Receive Date: 20120413
  Receipt Date: 20121130
  Transmission Date: 20130627
  Serious: No
  Sender: FDA-Public Use
  Company Number: US-ASTRAZENECA-2011SE31917

PATIENT
  Age: 54 Year
  Sex: Female

DRUGS (10)
  1. NEXIUM [Suspect]
     Route: 048
  2. NEXIUM [Suspect]
     Dosage: 2 CAPSULES PER DAY
     Route: 048
  3. PRILOSEC DELAYED RELEASE [Suspect]
     Route: 048
  4. PRILOSEC OTC [Suspect]
     Route: 048
  5. ALBUTEROL [Concomitant]
  6. ABILIFY [Concomitant]
  7. FLEXERIL [Concomitant]
  8. VICODIN [Concomitant]
  9. SPIRIVA [Concomitant]
  10. EFFEXOR XR [Concomitant]

REACTIONS (6)
  - Dysphagia [Unknown]
  - Gastrooesophageal reflux disease [Unknown]
  - Dysphonia [Unknown]
  - Fungal infection [Unknown]
  - Intentional drug misuse [Unknown]
  - Intentional drug misuse [Unknown]
